FAERS Safety Report 4641001-8 (Version None)
Quarter: 2005Q2

REPORT INFORMATION
  Report Type: 
  Country: None (occurrence: None)
  Receive Date: 20050419
  Receipt Date: 20050419
  Transmission Date: 20051028
  Serious: Yes (Hospitalization)
  Sender: FDA-Public Use
  Company Number: None

PATIENT
  Age: 62 Year
  Sex: Male

DRUGS (3)
  1. DILAUDID [Suspect]
     Indication: ANALGESIC EFFECT
     Dosage: 1 MG X 1 IV
     Route: 042
  2. DILAUDID [Suspect]
     Indication: NEPHROLITHIASIS
     Dosage: 1 MG X 1 IV
     Route: 042
  3. PROMETHAZINE IV + NS [Concomitant]

REACTIONS (1)
  - BLOOD PRESSURE DECREASED [None]
